FAERS Safety Report 5013726-6 (Version None)
Quarter: 2006Q2

REPORT INFORMATION
  Report Type: 
  Country: None (occurrence: None)
  Receive Date: 20060530
  Receipt Date: 20060517
  Transmission Date: 20061013
  Serious: Yes (Other)
  Sender: FDA-Public Use
  Company Number: US-BRISTOL-MYERS SQUIBB COMPANY-13379433

PATIENT
  Sex: Female

DRUGS (6)
  1. CISPLATIN [Suspect]
     Indication: OVARIAN CANCER
  2. ETOPOSIDE [Suspect]
     Indication: OVARIAN CANCER
  3. CARBOPLATIN [Suspect]
     Indication: OVARIAN CANCER
  4. PACLITAXEL [Suspect]
     Indication: OVARIAN CANCER
  5. FLUOROURACIL [Suspect]
     Indication: OVARIAN CANCER
  6. INTERFERON [Suspect]
     Indication: OVARIAN CANCER

REACTIONS (4)
  - ABDOMINAL PAIN [None]
  - BLOOD CREATININE INCREASED [None]
  - LEUKOPENIA [None]
  - PERITONITIS BACTERIAL [None]
